FAERS Safety Report 5655380-6 (Version None)
Quarter: 2008Q1

REPORT INFORMATION
  Report Type: 
  Country: None (occurrence: None)
  Receive Date: 20080307
  Receipt Date: 20080229
  Transmission Date: 20080703
  Serious: Yes (Life-Threatening, Hospitalization)
  Sender: FDA-Public Use
  Company Number: SG-MERCK-0707SGP00006

PATIENT
  Age: 51 Year
  Sex: Male

DRUGS (3)
  1. INVANZ [Suspect]
     Indication: CELLULITIS
     Route: 042
     Dates: start: 20070205, end: 20070213
  2. PHENYTOIN [Concomitant]
     Indication: CONVULSION
     Route: 048
  3. VANCOMYCIN [Concomitant]
     Indication: STAPHYLOCOCCAL INFECTION
     Route: 042
     Dates: start: 20070201

REACTIONS (1)
  - STATUS EPILEPTICUS [None]
